FAERS Safety Report 7586523-5 (Version None)
Quarter: 2011Q3

REPORT INFORMATION
  Report Type: 
  Country: None (occurrence: None)
  Receive Date: 20110701
  Receipt Date: 20110622
  Transmission Date: 20111222
  Serious: Yes (Hospitalization)
  Sender: FDA-Public Use
  Company Number: ES-ROCHE-785289

PATIENT
  Sex: Female

DRUGS (3)
  1. ZOLEDRONIC ACID [Suspect]
     Indication: BREAST CANCER
     Dosage: LAST DOSE PRIOR TO SAE 27 MAY 2011
     Route: 042
     Dates: start: 20110318, end: 20110527
  2. BEVACIZUMAB [Suspect]
     Indication: BREAST CANCER
     Dosage: LAST DOSE PRIOR TO SAE 27 MAY 2011
     Route: 042
     Dates: start: 20110323, end: 20110527
  3. LETROZOLE [Suspect]
     Indication: BREAST CANCER
     Dosage: LAST DOSE PRIOR TO SAE 14 JUN 2011.
     Route: 048
     Dates: start: 20110301, end: 20110614

REACTIONS (1)
  - PANCREATITIS [None]
